FAERS Safety Report 6149881-4 (Version None)
Quarter: 2009Q2

REPORT INFORMATION
  Report Type: 
  Country: None (occurrence: None)
  Receive Date: 20090409
  Receipt Date: 20090331
  Transmission Date: 20091009
  Serious: Yes (Disabling, Other)
  Sender: FDA-Public Use
  Company Number: US-PFIZER INC-2006083937

PATIENT
  Sex: Female
  Weight: 61.224 kg

DRUGS (2)
  1. PROVERA [Suspect]
     Indication: HORMONE REPLACEMENT THERAPY
     Dosage: 2.5 MG, UNK
     Route: 048
     Dates: start: 19970901, end: 20010101
  2. PREMARIN [Suspect]
     Indication: HORMONE REPLACEMENT THERAPY
     Dosage: 1.25MG AND THEN 0.9MG
     Route: 065
     Dates: start: 19970101, end: 20010101

REACTIONS (2)
  - BREAST CANCER FEMALE [None]
  - LYMPHOEDEMA [None]
